FAERS Safety Report 4563926-4 (Version None)
Quarter: 2005Q1

REPORT INFORMATION
  Report Type: 
  Country: None (occurrence: None)
  Receive Date: 20050121
  Receipt Date: 20040517
  Transmission Date: 20050727
  Serious: Yes (Hospitalization, Other)
  Sender: FDA-Public Use
  Company Number: 033-0981-M0000058

PATIENT
  Age: 72 Year
  Sex: Male
  Weight: 80 kg

DRUGS (7)
  1. ATORVASTATIN                     (ATORVASTATIN) [Suspect]
     Indication: CORONARY ARTERY DISEASE
     Dosage: 10 MG (1 IN 1 D), ORAL
     Route: 048
     Dates: start: 19990106, end: 19990304
  2. ATORVASTATIN                     (ATORVASTATIN) [Suspect]
     Indication: CORONARY ARTERY DISEASE
     Dosage: 10 MG (1 IN 1 D), ORAL
     Route: 048
     Dates: start: 19990305, end: 20000315
  3. BISOPROLOL FUMARATE [Concomitant]
  4. TRIMETAZIDINE HYDROCHLORIDE                     (TRIMETAZIDINE HYDROCH [Concomitant]
  5. EPOETIN ALFA             (EPOETIN ALFA) [Concomitant]
  6. MOLSIDOMINE             (MOLSIDOMINE) [Concomitant]
  7. FLUINDIONE       (FLUINDIONE) [Concomitant]

REACTIONS (7)
  - ABDOMINAL PAIN UPPER [None]
  - ATRIAL FIBRILLATION [None]
  - ELECTROCARDIOGRAM T WAVE INVERSION [None]
  - HAEMODIALYSIS [None]
  - PERICARDITIS [None]
  - POLYARTERITIS NODOSA [None]
  - RENAL FAILURE [None]
